FAERS Safety Report 10179514 (Version 6)
Quarter: 2014Q4

REPORT INFORMATION
  Report Type: Report from Study
  Country: US (occurrence: US)
  Receive Date: 20140519
  Receipt Date: 20141020
  Transmission Date: 20150528
  Serious: Yes (Hospitalization)
  Sender: FDA-Public Use
  Company Number: US-OTSUKA-US-2014-10497

PATIENT

DRUGS (2)
  1. BLINDED OPC-14597 [Suspect]
     Active Substance: CILOSTAZOL
     Dosage: 400 MG MILLIGRAM(S), UNK
     Route: 030
     Dates: start: 20130828, end: 20140115
  2. BLINDED OPC-14597 [Suspect]
     Active Substance: CILOSTAZOL
     Indication: BIPOLAR DISORDER
     Dosage: UNK
     Route: 065
     Dates: start: 20130214, end: 20130827

REACTIONS (1)
  - Bipolar disorder [Recovered/Resolved]

NARRATIVE: CASE EVENT DATE: 20140120
